FAERS Safety Report 13978191 (Version 2)
Quarter: 2017Q4

REPORT INFORMATION
  Report Type: Report from Study
  Country: US (occurrence: US)
  Receive Date: 20170915
  Receipt Date: 20171002
  Transmission Date: 20180321
  Serious: Yes (Hospitalization)
  Sender: FDA-Public Use
  Company Number: US-ACTELION-A-NJ2017-159299

PATIENT
  Age: 75 Year
  Sex: Female

DRUGS (1)
  1. OPSUMIT [Suspect]
     Active Substance: MACITENTAN
     Indication: PULMONARY ARTERIAL HYPERTENSION
     Dosage: 10 MG, QD
     Route: 048
     Dates: start: 20170801

REACTIONS (3)
  - Gastrooesophageal reflux disease [Unknown]
  - Pneumonia [Recovering/Resolving]
  - Lower respiratory tract congestion [Recovering/Resolving]
